FAERS Safety Report 19941867 (Version 3)
Quarter: 2022Q1

REPORT INFORMATION
  Report Type: Report from Study
  Country: CA (occurrence: CA)
  Receive Date: 20211011
  Receipt Date: 20220314
  Transmission Date: 20220424
  Serious: Yes (Death, Hospitalization, Other)
  Sender: FDA-Public Use
  Company Number: CA-TAKEDA-2021TUS019718

PATIENT
  Age: 51 Year
  Sex: Female

DRUGS (20)
  1. ICATIBANT [Suspect]
     Active Substance: ICATIBANT ACETATE
     Indication: Hereditary angioedema
     Dosage: 30 MILLIGRAM
     Route: 058
     Dates: start: 20170601, end: 202112
  2. ICATIBANT [Suspect]
     Active Substance: ICATIBANT ACETATE
     Indication: Hereditary angioedema
     Dosage: 30 MILLIGRAM
     Route: 058
     Dates: start: 20170601, end: 202112
  3. NABILONE [Concomitant]
     Active Substance: NABILONE
     Dosage: 0.5 MILLIGRAM
     Route: 065
     Dates: start: 201710
  4. HYDROMORPHONE [Concomitant]
     Active Substance: HYDROMORPHONE
     Dosage: 3 MILLIGRAM
     Route: 065
     Dates: start: 201710
  5. DARZALEX [Concomitant]
     Active Substance: DARATUMUMAB
     Indication: Neoplasm malignant
     Dosage: UNK
     Route: 065
     Dates: start: 201804
  6. CETIRIZINE HYDROCHLORIDE [Concomitant]
     Active Substance: CETIRIZINE HYDROCHLORIDE
  7. POMALYST [Concomitant]
     Active Substance: POMALIDOMIDE
     Indication: Neoplasm malignant
     Dosage: 4 MILLIGRAM
     Route: 065
  8. REVLIMID [Concomitant]
     Active Substance: LENALIDOMIDE
     Indication: Product used for unknown indication
  9. LASIX [Concomitant]
     Active Substance: FUROSEMIDE
     Dosage: 80 MILLIGRAM, QD
     Route: 065
     Dates: start: 202110
  10. HIZENTRA [Concomitant]
     Active Substance: HUMAN IMMUNOGLOBULIN G
     Dosage: 30 MILLILITER, 1/WEEK
  11. DEXAMETHASONE [Concomitant]
     Active Substance: DEXAMETHASONE
  12. PREGABALIN [Concomitant]
     Active Substance: PREGABALIN
  13. ASPIRIN [Concomitant]
     Active Substance: ASPIRIN
     Dosage: 81 MILLIGRAM, QD
  14. PANTOPRAZOLE SODIUM [Concomitant]
     Active Substance: PANTOPRAZOLE SODIUM
  15. CANNABIS SATIVA SUBSP. INDICA TOP [Concomitant]
     Active Substance: CANNABIS SATIVA SUBSP. INDICA TOP
  16. SERTRALINE [Concomitant]
     Active Substance: SERTRALINE HYDROCHLORIDE
  17. CHOLESTYRAMINE [Concomitant]
     Active Substance: CHOLESTYRAMINE
  18. VITAMIN B12 [Concomitant]
     Active Substance: CYANOCOBALAMIN
  19. CUVITRU [Concomitant]
     Active Substance: HUMAN IMMUNOGLOBULIN G
     Indication: Secondary immunodeficiency
     Dosage: 6 GRAM, 1/WEEK
     Dates: start: 20180731
  20. KYPROLIS [Concomitant]
     Active Substance: CARFILZOMIB

REACTIONS (4)
  - Thrombosis [Fatal]
  - Pulmonary hypertension [Unknown]
  - Asthenia [Unknown]
  - Peripheral swelling [Recovered/Resolved]

NARRATIVE: CASE EVENT DATE: 20210801
